FAERS Safety Report 5834730-1 (Version None)
Quarter: 2008Q3

REPORT INFORMATION
  Report Type: 
  Country: None (occurrence: None)
  Receive Date: 20080801
  Receipt Date: 20080724
  Transmission Date: 20090109
  Serious: Yes (Hospitalization)
  Sender: FDA-Public Use
  Company Number: 2008SP001724

PATIENT
  Age: 22 Year
  Sex: Female
  Weight: 69 kg

DRUGS (2)
  1. ESZOPICLONE (ESZOPICLONE) [Suspect]
     Indication: DEPRESSION
     Dosage: 3 MG HS ORAL
     Route: 048
     Dates: start: 20080711, end: 20080724
  2. VENLAFAXINE HCL [Suspect]
     Indication: DEPRESSION
     Dosage: 75 MG HS ORAL
     Route: 048
     Dates: start: 20080711, end: 20080724

REACTIONS (6)
  - AGITATION [None]
  - DISORIENTATION [None]
  - DRUG TOXICITY [None]
  - DYSARTHRIA [None]
  - INTENTIONAL DRUG MISUSE [None]
  - SUICIDE ATTEMPT [None]
